FAERS Safety Report 5053483-0 (Version None)
Quarter: 2006Q3

REPORT INFORMATION
  Report Type: 
  Country: None (occurrence: None)
  Receive Date: 20060712
  Receipt Date: 20060628
  Transmission Date: 20061208
  Serious: Yes (Other)
  Sender: FDA-Public Use
  Company Number: 2006082049

PATIENT
  Age: 37 Year
  Sex: Female

DRUGS (2)
  1. DIFLUCAN [Suspect]
     Indication: MENINGITIS CRYPTOCOCCAL
     Dosage: 800 MG (400 MG, 2 IN 1 D);
     Dates: start: 20060622
  2. PHENYTOIN [Concomitant]

REACTIONS (6)
  - ASPARTATE AMINOTRANSFERASE INCREASED [None]
  - BLOOD ALBUMIN INCREASED [None]
  - BLOOD ALKALINE PHOSPHATASE INCREASED [None]
  - BLOOD BILIRUBIN INCREASED [None]
  - BLOOD CREATINE INCREASED [None]
  - GAMMA-GLUTAMYLTRANSFERASE INCREASED [None]
